FAERS Safety Report 6667478-4 (Version None)
Quarter: 2010Q2

REPORT INFORMATION
  Report Type: 
  Country: None (occurrence: None)
  Receive Date: 20100405
  Receipt Date: 20100330
  Transmission Date: 20101027
  Serious: Yes (Other)
  Sender: FDA-Public Use
  Company Number: NL-ROCHE-689946

PATIENT
  Sex: Male
  Weight: 72 kg

DRUGS (5)
  1. PEGINTERFERON ALFA-2A [Suspect]
     Indication: HEPATITIS C
     Route: 058
     Dates: start: 20100209
  2. RIBAVIRIN [Suspect]
     Indication: HEPATITIS C
     Route: 048
  3. METFORMIN HCL [Suspect]
     Indication: DRUG USE FOR UNKNOWN INDICATION
     Dosage: DOSE: 3X220 MG
     Route: 065
  4. METHADONE HCL [Suspect]
     Indication: DRUG USE FOR UNKNOWN INDICATION
     Dosage: FREQUENCY:1X20 MG
     Route: 065
  5. LISINOPRIL [Concomitant]
     Indication: HYPERTENSION
     Dates: start: 20091201, end: 20100219

REACTIONS (2)
  - DIZZINESS [None]
  - FALL [None]
